FAERS Safety Report 20674776 (Version 1)
Quarter: 2022Q2

REPORT INFORMATION
  Report Type: Spontaneous
  Country: US (occurrence: None)
  Receive Date: 20220404
  Receipt Date: 20220404
  Transmission Date: 20220721
  Serious: Yes (Other)
  Sender: FDA-Public Use
  Company Number: None

PATIENT
  Age: 77 Year
  Sex: Female
  Weight: 57.6 kg

DRUGS (11)
  1. DUPIXENT [Suspect]
     Active Substance: DUPILUMAB
     Indication: Urticaria
     Dosage: OTHER FREQUENCY : EVERY 2 WEEKS;?
     Route: 030
     Dates: start: 20211022
  2. DUPIXENT [Suspect]
     Active Substance: DUPILUMAB
     Indication: Eczema
  3. LETROZOLE [Concomitant]
     Active Substance: LETROZOLE
  4. ZOMETA [Concomitant]
     Active Substance: ZOLEDRONIC ACID
  5. ACYCLOVIR [Concomitant]
     Active Substance: ACYCLOVIR
  6. ALBUTEROL [Concomitant]
     Active Substance: ALBUTEROL
  7. ANASTROZOLE [Concomitant]
     Active Substance: ANASTROZOLE
  8. SYMBICORT [Concomitant]
     Active Substance: BUDESONIDE\FORMOTEROL FUMARATE DIHYDRATE
  9. CLOBETASOL [Concomitant]
     Active Substance: CLOBETASOL
  10. FLUOXETINE [Concomitant]
     Active Substance: FLUOXETINE HYDROCHLORIDE
  11. Multivitamin [Concomitant]

REACTIONS (6)
  - Wheezing [None]
  - Pruritus [None]
  - Therapy interrupted [None]
  - Injection site reaction [None]
  - Dyspnoea [None]
  - Impaired work ability [None]

NARRATIVE: CASE EVENT DATE: 20211022
